FAERS Safety Report 10211654 (Version 1)
Quarter: 2014Q2

REPORT INFORMATION
  Report Type: Spontaneous
  Country: US (occurrence: US)
  Receive Date: 20140602
  Receipt Date: 20140602
  Transmission Date: 20141212
  Serious: No
  Sender: FDA-Public Use
  Company Number: US-GLAXOSMITHKLINE-A1070811A

PATIENT
  Age: 12 Year
  Sex: Female

DRUGS (2)
  1. FABIOR [Suspect]
     Indication: ACNE
     Dosage: 1APP AT NIGHT
     Route: 061
     Dates: start: 201404
  2. ANTIBIOTIC [Concomitant]
     Route: 048

REACTIONS (2)
  - Rash [Not Recovered/Not Resolved]
  - Pruritus [Unknown]
